FAERS Safety Report 6298414-0 (Version None)
Quarter: 2009Q3

REPORT INFORMATION
  Report Type: 
  Country: None (occurrence: None)
  Receive Date: 20090805
  Receipt Date: 20090731
  Transmission Date: 20100115
  Serious: Yes (Hospitalization)
  Sender: FDA-Public Use
  Company Number: IT-SANOFI-SYNTHELABO-A06200900363

PATIENT
  Sex: Male

DRUGS (3)
  1. ELOXATIN [Suspect]
     Indication: COLORECTAL CANCER
     Route: 042
     Dates: start: 20090713, end: 20090713
  2. DECADRON [Concomitant]
     Indication: PROPHYLAXIS OF NAUSEA AND VOMITING
     Dosage: UNK
     Route: 065
     Dates: start: 20090713, end: 20090713
  3. ZOFRAN [Concomitant]
     Indication: PROPHYLAXIS OF NAUSEA AND VOMITING
     Route: 065
     Dates: start: 20090713, end: 20090713

REACTIONS (9)
  - ACTIVATED PARTIAL THROMBOPLASTIN TIME PROLONGED [None]
  - BLOOD BILIRUBIN INCREASED [None]
  - BLOOD FIBRINOGEN DECREASED [None]
  - BODY TEMPERATURE INCREASED [None]
  - CHILLS [None]
  - DISSEMINATED INTRAVASCULAR COAGULATION [None]
  - FIBRIN D DIMER [None]
  - HAEMATURIA [None]
  - PLATELET COUNT DECREASED [None]
